FAERS Safety Report 20638314 (Version 1)
Quarter: 2022Q1

REPORT INFORMATION
  Report Type: Spontaneous
  Country: US (occurrence: None)
  Receive Date: 20220325
  Receipt Date: 20220325
  Transmission Date: 20220423
  Serious: Yes (Other)
  Sender: FDA-Public Use
  Company Number: None

PATIENT
  Age: 72 Year
  Sex: Female
  Weight: 58.95 kg

DRUGS (1)
  1. HUMIRA [Suspect]
     Active Substance: ADALIMUMAB
     Indication: Psoriasis
     Dosage: OTHER FREQUENCY : Q14 DAYS;?
     Route: 058
     Dates: start: 20210702, end: 20220213

REACTIONS (4)
  - Psoriasis [None]
  - Generalised oedema [None]
  - Pain [None]
  - Pain in extremity [None]

NARRATIVE: CASE EVENT DATE: 20210929
